FAERS Safety Report 13826268 (Version 5)
Quarter: 2022Q2

REPORT INFORMATION
  Report Type: Report from Study
  Country: US (occurrence: None)
  Receive Date: 20170802
  Receipt Date: 20220519
  Transmission Date: 20220721
  Serious: Yes (Hospitalization, Other)
  Sender: FDA-Public Use
  Company Number: US-MERCK KGAA-7056049

PATIENT
  Age: 45 Year
  Sex: Female
  Weight: 88 kg

DRUGS (1)
  1. REBIF [Suspect]
     Active Substance: INTERFERON BETA-1A
     Indication: Multiple sclerosis
     Dosage: BATCH NUMBER - AU033816
     Route: 058
     Dates: start: 20031109

REACTIONS (10)
  - Adverse drug reaction [Recovering/Resolving]
  - Multiple sclerosis relapse [Not Recovered/Not Resolved]
  - Intervertebral disc degeneration [Not Recovered/Not Resolved]
  - Spinal stenosis [Recovered/Resolved]
  - Intervertebral disc protrusion [Unknown]
  - Exostosis [Recovered/Resolved]
  - Osteoporosis [Unknown]
  - Osteoarthritis [Unknown]
  - Hypoaesthesia [Unknown]
  - Post procedural complication [Unknown]

NARRATIVE: CASE EVENT DATE: 20100101
